FAERS Safety Report 25833747 (Version 5)
Quarter: 2025Q4

REPORT INFORMATION
  Report Type: Report from Study
  Country: US (occurrence: US)
  Receive Date: 20250923
  Receipt Date: 20251216
  Transmission Date: 20260119
  Serious: Yes (Death, Life-Threatening, Other)
  Sender: ALEXION PHARMACEUTICALS
  Company Number: US-AstraZeneca-CH-00926940A

PATIENT
  Age: 96 Year
  Sex: Female
  Weight: 56.88 kg

DRUGS (1)
  1. RAVULIZUMAB [Suspect]
     Active Substance: RAVULIZUMAB
     Indication: Myasthenia gravis
     Dosage: 3300 MILLIGRAM, Q8W
     Route: 065

REACTIONS (42)
  - Death [Fatal]
  - Dementia Alzheimer^s type [Unknown]
  - Disability [Unknown]
  - Myasthenia gravis [Unknown]
  - Cardiac failure [Unknown]
  - Hypokalaemia [Unknown]
  - Aspiration [Unknown]
  - Dementia [Unknown]
  - Dysphagia [Unknown]
  - White blood cell count increased [Unknown]
  - Incoherent [Not Recovered/Not Resolved]
  - Feeding disorder [Unknown]
  - Dysphagia [Unknown]
  - Odynophagia [Unknown]
  - Cerebrovascular disorder [Unknown]
  - Gastrooesophageal reflux disease [Unknown]
  - Anaemia [Unknown]
  - Anxiety [Unknown]
  - Depression [Unknown]
  - Hypertension [Unknown]
  - Osteoarthritis [Unknown]
  - Osteoporosis [Unknown]
  - Peripheral vascular disorder [Unknown]
  - Insomnia [Unknown]
  - Cardiac murmur [Unknown]
  - Constipation [Unknown]
  - Mastication disorder [Unknown]
  - Cough [Unknown]
  - Calcinosis [Unknown]
  - Wheelchair user [Unknown]
  - Gastrointestinal motility disorder [Unknown]
  - Cough [Unknown]
  - Lip disorder [Unknown]
  - Tongue disorder [Unknown]
  - Oromandibular dystonia [Unknown]
  - Tongue movement disturbance [Unknown]
  - Mastication disorder [Unknown]
  - Pharyngeal disorder [Unknown]
  - Disturbance in attention [Unknown]
  - Tooth loss [Unknown]
  - Jaw disorder [Unknown]
  - Pharyngeal disorder [Unknown]

NARRATIVE: CASE EVENT DATE: 20250910
